FAERS Safety Report 7660126-6 (Version None)
Quarter: 2011Q3

REPORT INFORMATION
  Report Type: 
  Country: None (occurrence: None)
  Receive Date: 20110805
  Receipt Date: 20110729
  Transmission Date: 20111222
  Serious: Yes (Hospitalization, Other)
  Sender: FDA-Public Use
  Company Number: US-BAYER-201035129NA

PATIENT
  Age: 22 Year
  Sex: Female
  Weight: 75.737 kg

DRUGS (16)
  1. CLARINEX [Concomitant]
     Dosage: 5 MG, QD
  2. FLUCONAZOLE [Concomitant]
     Dosage: UNK
     Dates: start: 20080101
  3. TRIAMCINOLONE ACETONIDE [Concomitant]
  4. PREDNISONE [Concomitant]
     Dosage: 20 MG, OM
  5. MINOCYCLINE HCL [Concomitant]
     Dosage: UNK
     Dates: start: 20080101
  6. CEPHALEXIN [Concomitant]
     Dosage: UNK
     Dates: start: 20080101
  7. NAPROXEN [Concomitant]
     Dosage: UNK
     Dates: start: 20080101
  8. BENZACLIN [Concomitant]
     Dosage: UNK UNK, BID
     Route: 061
     Dates: start: 20080923
  9. YASMIN [Suspect]
     Indication: ORAL CONTRACEPTION
     Route: 048
     Dates: start: 20050201, end: 20060401
  10. AZITHROMYCIN [Concomitant]
     Dosage: UNK
     Dates: start: 20060101, end: 20090101
  11. REQUIP [Concomitant]
     Indication: RESTLESS LEGS SYNDROME
     Dosage: 1 MG, HS
     Route: 048
     Dates: start: 20060101, end: 20090101
  12. PRENATAL FOLIC ACID [Concomitant]
     Dosage: UNK UNK, QD
  13. YASMIN [Suspect]
     Indication: ACNE
  14. YAZ [Suspect]
     Indication: ORAL CONTRACEPTION
     Route: 048
     Dates: start: 20080701, end: 20090301
  15. NITROFURANTOIN MONOHYDRATE/MACROCRYSTALS [Concomitant]
     Dosage: UNK
     Dates: start: 20080301
  16. MONOCYCLINE [Concomitant]
     Dosage: UNK
     Dates: start: 20080701

REACTIONS (8)
  - GALLBLADDER DISORDER [None]
  - ABDOMINAL DISCOMFORT [None]
  - ABDOMINAL PAIN [None]
  - CHOLELITHIASIS [None]
  - PAIN [None]
  - VOMITING [None]
  - CHOLECYSTITIS [None]
  - ABDOMINAL PAIN UPPER [None]
